FAERS Safety Report 13757036 (Version 6)
Quarter: 2021Q2

REPORT INFORMATION
  Report Type: Spontaneous
  Country: RS (occurrence: RS)
  Receive Date: 20170715
  Receipt Date: 20210402
  Transmission Date: 20210716
  Serious: Yes (Death, Hospitalization, Other)
  Sender: FDA-Public Use
  Company Number: RS-009507513-1707SRB001519

PATIENT
  Age: 57 Year
  Sex: Male
  Weight: 57 kg

DRUGS (1)
  1. KEYTRUDA [Suspect]
     Active Substance: PEMBROLIZUMAB
     Indication: MALIGNANT MELANOMA
     Dosage: 150MG, 1 PER 4 WEEKS
     Route: 042
     Dates: start: 20170327, end: 20170429

REACTIONS (5)
  - Malignant neoplasm progression [Fatal]
  - Immune-mediated adverse reaction [Unknown]
  - Toxicity to various agents [Unknown]
  - Stomatitis [Recovering/Resolving]
  - Cheilitis [Recovering/Resolving]

NARRATIVE: CASE EVENT DATE: 2017
